FAERS Safety Report 5732687-5 (Version None)
Quarter: 2008Q2

REPORT INFORMATION
  Report Type: 
  Country: None (occurrence: None)
  Receive Date: 20080509
  Receipt Date: 20080429
  Transmission Date: 20081010
  Serious: Yes (Other)
  Sender: FDA-Public Use
  Company Number: CH-BAYER-200816852GPV

PATIENT
  Sex: Female

DRUGS (1)
  1. NEXAVAR [Suspect]
     Indication: GASTROINTESTINAL STROMAL TUMOUR
     Route: 048

REACTIONS (1)
  - DEAFNESS [None]
